FAERS Safety Report 6771982-8 (Version None)
Quarter: 2010Q2

REPORT INFORMATION
  Report Type: 
  Country: None (occurrence: None)
  Receive Date: 20100616
  Receipt Date: 20100323
  Transmission Date: 20101027
  Serious: No
  Sender: FDA-Public Use
  Company Number: US-ASTRAZENECA-2008UW08023

PATIENT
  Age: 58 Year
  Sex: Male
  Weight: 72.6 kg

DRUGS (10)
  1. RHINOCORT [Suspect]
     Indication: RHINITIS
     Route: 045
     Dates: start: 20010101
  2. RHINOCORT [Suspect]
     Indication: VASOMOTOR RHINITIS
     Route: 045
     Dates: start: 20010101
  3. RHINOCORT [Suspect]
     Indication: MULTIPLE ALLERGIES
     Route: 045
     Dates: start: 20010101
  4. RHINOCORT [Suspect]
     Route: 045
     Dates: start: 20010101
  5. RHINOCORT [Suspect]
     Route: 045
     Dates: start: 20010101
  6. RHINOCORT [Suspect]
     Route: 045
     Dates: start: 20010101
  7. CLARITIN [Concomitant]
  8. DOXEPIN HCL [Concomitant]
  9. MECLIZINE [Concomitant]
  10. BENTYL [Concomitant]

REACTIONS (6)
  - BURNING SENSATION [None]
  - MUSCULAR WEAKNESS [None]
  - NASAL CONGESTION [None]
  - SINUS DISORDER [None]
  - SKIN IRRITATION [None]
  - THERAPEUTIC RESPONSE DECREASED [None]
